FAERS Safety Report 24533276 (Version 1)
Quarter: 2024Q4

REPORT INFORMATION
  Report Type: Spontaneous
  Country: US (occurrence: US)
  Receive Date: 20241022
  Receipt Date: 20241022
  Transmission Date: 20250114
  Serious: No
  Sender: CSL BEHRING
  Company Number: US-BEH-2024170695

PATIENT
  Age: 44 Year
  Sex: Male

DRUGS (8)
  1. IDELVION [Suspect]
     Active Substance: COAGULATION FACTOR IX RECOMBINANT HUMAN
     Indication: Factor IX deficiency
     Dosage: 4500 IU, QW
     Route: 042
     Dates: start: 202009
  2. IDELVION [Suspect]
     Active Substance: COAGULATION FACTOR IX RECOMBINANT HUMAN
     Indication: Factor IX deficiency
     Dosage: 4500 IU, QW
     Route: 042
     Dates: start: 202009
  3. IDELVION [Suspect]
     Active Substance: COAGULATION FACTOR IX RECOMBINANT HUMAN
     Indication: Haemorrhage
     Dosage: 4500 IU, DAILY AS NEEDED
     Route: 042
     Dates: start: 202009
  4. IDELVION [Suspect]
     Active Substance: COAGULATION FACTOR IX RECOMBINANT HUMAN
     Indication: Haemorrhage
     Dosage: 4500 IU, DAILY AS NEEDED
     Route: 042
     Dates: start: 202009
  5. IDELVION [Suspect]
     Active Substance: COAGULATION FACTOR IX RECOMBINANT HUMAN
     Dosage: STRENGHT 500 EVERY 7 DAYS AND PRN
     Route: 042
     Dates: start: 202009
  6. IDELVION [Suspect]
     Active Substance: COAGULATION FACTOR IX RECOMBINANT HUMAN
     Dosage: STRENGHT 500 EVERY 7 DAYS AND PRN
     Route: 042
     Dates: start: 202009
  7. IDELVION [Suspect]
     Active Substance: COAGULATION FACTOR IX RECOMBINANT HUMAN
     Dosage: STRENGHT 3500 EVERY 7 DAYS AND PRN
     Route: 042
     Dates: start: 202009
  8. IDELVION [Suspect]
     Active Substance: COAGULATION FACTOR IX RECOMBINANT HUMAN
     Dosage: STRENGHT 3500 EVERY 7 DAYS AND PRN
     Route: 042
     Dates: start: 202009

REACTIONS (2)
  - Emergency care [Unknown]
  - Haemorrhage [Recovered/Resolved]

NARRATIVE: CASE EVENT DATE: 20240311
